FAERS Safety Report 22610907 (Version 1)
Quarter: 2023Q2

REPORT INFORMATION
  Report Type: Spontaneous
  Country: US (occurrence: US)
  Receive Date: 20230616
  Receipt Date: 20230616
  Transmission Date: 20230721
  Serious: Yes (Other)
  Sender: FDA-Public Use
  Company Number: US-SUN PHARMACEUTICAL INDUSTRIES LTD-2023R1-395048

PATIENT
  Age: 46 Year
  Sex: Male

DRUGS (1)
  1. BACTRIM [Suspect]
     Active Substance: SULFAMETHOXAZOLE\TRIMETHOPRIM
     Indication: Cough
     Dosage: UNK
     Route: 065

REACTIONS (3)
  - Mycoplasma test positive [Unknown]
  - Rhabdomyolysis [Unknown]
  - Acute kidney injury [Unknown]
